FAERS Safety Report 5875915-8 (Version None)
Quarter: 2008Q3

REPORT INFORMATION
  Report Type: 
  Country: None (occurrence: None)
  Receive Date: 20080910
  Receipt Date: 20080904
  Transmission Date: 20090109
  Serious: Yes (Death, Other)
  Sender: FDA-Public Use
  Company Number: PHHY2008JP17377

PATIENT
  Age: 61 Year
  Sex: Female

DRUGS (3)
  1. EXJADE [Suspect]
     Indication: IRON OVERLOAD
     Dosage: 125 MG DAILY
     Route: 048
     Dates: start: 20080715, end: 20080723
  2. NEORAL [Concomitant]
     Indication: APLASIA PURE RED CELL
     Dosage: 35 MG TWICE DAILY
     Dates: start: 20030826
  3. LUPRAC [Concomitant]
     Indication: RENAL FAILURE
     Dosage: 4 DF, QD
     Dates: start: 20070926

REACTIONS (8)
  - ARTHRALGIA [None]
  - BLOOD CREATININE INCREASED [None]
  - BLOOD POTASSIUM INCREASED [None]
  - BLOOD UREA INCREASED [None]
  - CARDIAC ARREST [None]
  - RASH ERYTHEMATOUS [None]
  - RENAL FAILURE ACUTE [None]
  - URINE OUTPUT DECREASED [None]
